FAERS Safety Report 5501892-5 (Version None)
Quarter: 2007Q4

REPORT INFORMATION
  Report Type: 
  Country: None (occurrence: None)
  Receive Date: 20071030
  Receipt Date: 20071018
  Transmission Date: 20080405
  Serious: Yes (Hospitalization)
  Sender: FDA-Public Use
  Company Number: PL-AMGEN-UK249200

PATIENT
  Sex: Male

DRUGS (2)
  1. NEUPOGEN [Suspect]
     Indication: DRUG USE FOR UNKNOWN INDICATION
     Dates: start: 20071011, end: 20071017
  2. DENOSUMAB - PRIOR TO STUDY DRUG ADMINISTRATION [Suspect]
     Indication: METASTASES TO BONE

REACTIONS (2)
  - GENERAL PHYSICAL CONDITION ABNORMAL [None]
  - WHITE BLOOD CELL COUNT INCREASED [None]
